FAERS Safety Report 4476204-9 (Version None)
Quarter: 2004Q3

REPORT INFORMATION
  Report Type: 
  Country: None (occurrence: None)
  Receive Date: 20040923
  Receipt Date: 20040729
  Transmission Date: 20050211
  Serious: No
  Sender: FDA-Public Use
  Company Number: USA040774074

PATIENT
  Age: 77 Year
  Sex: Female

DRUGS (6)
  1. EVISTA [Suspect]
     Dates: start: 20000601, end: 20040601
  2. FORTEO [Suspect]
     Indication: OSTEOPOROSIS
     Dates: start: 20040615
  3. DIOVAN [Concomitant]
  4. VIACTIV [Concomitant]
  5. ASPIRIN [Concomitant]
  6. FOSAMAX [Concomitant]

REACTIONS (3)
  - DRUG INEFFECTIVE [None]
  - INJECTION SITE ERYTHEMA [None]
  - INJECTION SITE NODULE [None]
